FAERS Safety Report 17377025 (Version 9)
Quarter: 2024Q3

REPORT INFORMATION
  Report Type: Spontaneous
  Country: US (occurrence: US)
  Receive Date: 20200206
  Receipt Date: 20240925
  Transmission Date: 20241017
  Serious: Yes (Hospitalization, Other)
  Sender: PFIZER
  Company Number: US-PFIZER INC-2020050446

PATIENT
  Age: 64 Year
  Sex: Female

DRUGS (7)
  1. XELJANZ XR [Suspect]
     Active Substance: TOFACITINIB CITRATE
     Indication: Rheumatoid arthritis
     Dosage: 11 MG, 1X/DAY
     Route: 048
     Dates: start: 201912, end: 202004
  2. XELJANZ XR [Suspect]
     Active Substance: TOFACITINIB CITRATE
     Dosage: 11 MG, 1X/DAY
     Route: 048
     Dates: start: 202105, end: 20210801
  3. XELJANZ XR [Suspect]
     Active Substance: TOFACITINIB CITRATE
     Dosage: UNK
     Dates: end: 202312
  4. XELJANZ XR [Suspect]
     Active Substance: TOFACITINIB CITRATE
     Dosage: 1 TABLET BY MOUTH
     Route: 048
     Dates: start: 20240731
  5. DICLOFENAC [Concomitant]
     Active Substance: DICLOFENAC
     Indication: Back pain
     Dosage: 75 MG, 2X/DAY
  6. ALLOPURINOL [Concomitant]
     Active Substance: ALLOPURINOL
     Dosage: UNK
  7. GABAPENTIN [Concomitant]
     Active Substance: GABAPENTIN
     Indication: Back pain
     Dosage: UNK

REACTIONS (12)
  - Spinal operation [Recovering/Resolving]
  - Hip surgery [Unknown]
  - Wrist fracture [Unknown]
  - Fall [Unknown]
  - Respiratory disorder [Recovered/Resolved]
  - Neck pain [Unknown]
  - Therapeutic product effect incomplete [Not Recovered/Not Resolved]
  - Head injury [Unknown]
  - Pain in extremity [Unknown]
  - Muscle spasms [Unknown]
  - Product dose omission in error [Unknown]
  - Intentional product misuse [Unknown]

NARRATIVE: CASE EVENT DATE: 20200222
